FAERS Safety Report 7419315-8 (Version None)
Quarter: 2011Q2

REPORT INFORMATION
  Report Type: 
  Country: None (occurrence: None)
  Receive Date: 20110415
  Receipt Date: 20110412
  Transmission Date: 20111010
  Serious: Yes (Hospitalization)
  Sender: FDA-Public Use
  Company Number: JP-ABBOTT-11P-087-0718517-00

PATIENT
  Age: 78 Year
  Weight: 43.3 kg

DRUGS (1)
  1. HUMIRA [Suspect]
     Indication: RHEUMATOID ARTHRITIS
     Route: 058
     Dates: start: 20100901, end: 20110214

REACTIONS (4)
  - HENOCH-SCHONLEIN PURPURA [None]
  - PURPURA [None]
  - SKIN ULCER [None]
  - RASH [None]
